FAERS Safety Report 4565593-2 (Version None)
Quarter: 2005Q1

REPORT INFORMATION
  Report Type: 
  Country: None (occurrence: None)
  Receive Date: 20050125
  Receipt Date: 20050125
  Transmission Date: 20050727
  Serious: Yes (Hospitalization)
  Sender: FDA-Public Use
  Company Number: None

PATIENT
  Age: 60 Year
  Sex: Male
  Weight: 98 kg

DRUGS (13)
  1. DIPYRIDAMOLE [Suspect]
     Indication: CARDIAC STRESS TEST
     Dosage: ONCE, INTRAVENOUS
     Route: 042
     Dates: start: 20040519, end: 20040519
  2. ATENOLOL [Concomitant]
  3. SIMVASTATIN [Concomitant]
  4. POTASSIUM CHLORIDE [Concomitant]
  5. TRAZODONE HCL [Concomitant]
  6. FUROSEMIDE [Concomitant]
  7. TESTOSTERONE CYP [Concomitant]
  8. HYDROCHLOROTHIAZIDE [Concomitant]
  9. ISOSORBIDE DINITRATE [Concomitant]
  10. ASPIRIN [Concomitant]
  11. NITROGLYCERIN [Concomitant]
  12. PROPOXYPHENE N [Concomitant]
  13. ALPRAZOLAM [Concomitant]

REACTIONS (2)
  - DYSPHONIA [None]
  - TREMOR [None]
